FAERS Safety Report 7044648-7 (Version None)
Quarter: 2010Q3

REPORT INFORMATION
  Report Type: 
  Country: None (occurrence: None)
  Receive Date: 20100929
  Receipt Date: 20100616
  Transmission Date: 20110219
  Serious: No
  Sender: FDA-Public Use
  Company Number: US-WYE-H16080610

PATIENT
  Age: 67 Year
  Sex: Female
  Weight: 108.96 kg

DRUGS (11)
  1. PRISTIQ [Suspect]
     Indication: DEPRESSION
     Dosage: (50 MG 2X PER 1 DAY) (50 MG 1X PER 2 DAY) (50 MG 1X PER 1 DAY)
     Dates: start: 20090101, end: 20100501
  2. PRISTIQ [Suspect]
     Indication: DEPRESSION
     Dosage: (50 MG 2X PER 1 DAY) (50 MG 1X PER 2 DAY) (50 MG 1X PER 1 DAY)
     Dates: start: 20100501, end: 20100601
  3. PRISTIQ [Suspect]
     Indication: DEPRESSION
     Dosage: (50 MG 2X PER 1 DAY) (50 MG 1X PER 2 DAY) (50 MG 1X PER 1 DAY)
     Dates: start: 20100601, end: 20100601
  4. WELLBUTRIN [Concomitant]
  5. SYNTHROID [Concomitant]
  6. DIOVAN [Concomitant]
  7. BUMEX [Concomitant]
  8. PRAVACHOL [Concomitant]
  9. ASPIRIN [Concomitant]
  10. ATIVAN [Concomitant]
  11. VITAMINS [Concomitant]

REACTIONS (2)
  - DRUG WITHDRAWAL SYNDROME [None]
  - HYPERHIDROSIS [None]
